FAERS Safety Report 5301079-5 (Version None)
Quarter: 2007Q2

REPORT INFORMATION
  Report Type: 
  Country: None (occurrence: None)
  Receive Date: 20070418
  Receipt Date: 20070404
  Transmission Date: 20071010
  Serious: Yes (Hospitalization)
  Sender: FDA-Public Use
  Company Number: US-ELI_LILLY_AND_COMPANY-US200703002104

PATIENT
  Age: 77 Year
  Sex: Female
  Weight: 53.061 kg

DRUGS (16)
  1. FORTEO [Suspect]
     Indication: OSTEOPOROSIS
     Dosage: UNK D/F, UNKNOWN
     Dates: start: 20060201, end: 20060701
  2. EFFEXOR [Concomitant]
     Dosage: 75 UNK, DAILY (1/D)
  3. FOSAMAX [Concomitant]
     Dosage: 70 MG, WEEKLY (1/W)
  4. ALLEGRA [Concomitant]
     Dosage: 180 MG, DAILY (1/D)
  5. ASCORBIC ACID [Concomitant]
     Dosage: UNK, 2/D
  6. TOPROL-XL [Concomitant]
     Dosage: 25 MG, DAILY (1/D)
  7. NAPROXEN [Concomitant]
     Dosage: 500 MG, DAILY (1/D)
  8. LASIX [Concomitant]
     Dosage: 10 MG, DAILY (1/D)
  9. ZOCOR [Concomitant]
     Dosage: 20 MG, DAILY (1/D)
  10. MULTI-VITAMIN [Concomitant]
     Dosage: UNK, DAILY (1/D)
  11. OSCAL D [Concomitant]
     Dosage: UNK, 2/D
  12. FERROUS SULFATE [Concomitant]
     Dosage: 325 MG, DAILY (1/D)
  13. PROTONIX [Concomitant]
     Dosage: 40 MG, DAILY (1/D)
  14. SODIUM CHLORIDE [Concomitant]
     Dosage: 1 G, 2/D
  15. VASOTEC [Concomitant]
     Dosage: 5 MG, DAILY (1/D)
  16. ASPIRIN [Concomitant]
     Dosage: 162 MG, DAILY (1/D)

REACTIONS (4)
  - CARDIAC VALVE DISEASE [None]
  - CORONARY ARTERY DISEASE [None]
  - HYPONATRAEMIA [None]
  - MUSCLE SPASMS [None]
